APPROVED DRUG PRODUCT: TAZAROTENE
Active Ingredient: TAZAROTENE
Strength: 0.1%
Dosage Form/Route: CREAM;TOPICAL
Application: A211175 | Product #001
Applicant: FOUGERA PHARMACEUTICALS INC
Approved: Jan 28, 2019 | RLD: No | RS: No | Type: DISCN